FAERS Safety Report 10249979 (Version 1)
Quarter: 2014Q2

REPORT INFORMATION
  Report Type: Spontaneous
  Country: US (occurrence: None)
  Receive Date: 20140618
  Receipt Date: 20140618
  Transmission Date: 20141212
  Serious: No
  Sender: FDA-Public Use
  Company Number: CC14-0737

PATIENT
  Age: 83 Year
  Sex: Female

DRUGS (1)
  1. KETOCONAZOLE 2%, SHAMPOO [Suspect]

REACTIONS (1)
  - Hair colour changes [None]
